FAERS Safety Report 4950899-5 (Version None)
Quarter: 2006Q1

REPORT INFORMATION
  Report Type: 
  Country: None (occurrence: None)
  Receive Date: 20060322
  Receipt Date: 20021101
  Transmission Date: 20060701
  Serious: Yes (Other)
  Sender: FDA-Public Use
  Company Number: DE-BRISTOL-MYERS SQUIBB COMPANY-13313846

PATIENT
  Age: 35 Year
  Sex: Female
  Weight: 62 kg

DRUGS (7)
  1. SUSTIVA [Suspect]
     Indication: HIV INFECTION
     Dates: start: 20000524
  2. VIDEX [Suspect]
     Indication: HIV INFECTION
     Dates: start: 20000524
  3. ZERIT [Suspect]
     Indication: HIV INFECTION
     Dates: start: 19960717
  4. ZIDOVUDINE [Suspect]
     Indication: HIV INFECTION
     Dosage: 2 DOSE FORM DAILY 13-NOV-95 FOR 6 WEEKS, INCREASED TO 3 DOSE FORM DAILY 02-JAN-96 FOR 26 WEEKS
     Dates: start: 19951113
  5. LAMIVUDINE [Suspect]
     Indication: HIV INFECTION
     Dates: start: 19960108
  6. INDINIVIR SULFATE [Suspect]
     Indication: HIV INFECTION
     Dates: start: 19960717
  7. LOPINAVIR + RITONAVIR [Suspect]
     Indication: HIV INFECTION
     Dates: start: 20000531

REACTIONS (17)
  - ALOPECIA [None]
  - ASTHENIA [None]
  - BACK PAIN [None]
  - DERMATITIS ALLERGIC [None]
  - DIARRHOEA [None]
  - DRUG EXPOSURE DURING PREGNANCY [None]
  - ERYTHEMA NODOSUM [None]
  - FATIGUE [None]
  - HEADACHE [None]
  - HERPES VIRUS INFECTION [None]
  - HYPERSENSITIVITY [None]
  - OPPORTUNISTIC INFECTION [None]
  - PLATELET COUNT DECREASED [None]
  - PNEUMOCYSTIS JIROVECI PNEUMONIA [None]
  - PREGNANCY [None]
  - TREATMENT NONCOMPLIANCE [None]
  - VIRAL MUTATION IDENTIFIED [None]
